FAERS Safety Report 10253364 (Version 1)
Quarter: 2014Q2

REPORT INFORMATION
  Report Type: Spontaneous
  Country: US (occurrence: None)
  Receive Date: 20140619
  Receipt Date: 20140619
  Transmission Date: 20141212
  Serious: Yes (Disabling)
  Sender: FDA-Public Use
  Company Number: None

PATIENT
  Age: 68 Year
  Sex: Female
  Weight: 78.02 kg

DRUGS (21)
  1. IOFLUPANE I 123 [Suspect]
     Indication: PARKINSON^S DISEASE
     Dosage: 1 INJECTION 2.5 ML, ONCE, BY INJECTION INTO I.V.
     Route: 042
     Dates: start: 20140515, end: 20140515
  2. IOFLUPANE I 123 [Suspect]
     Indication: SCAN
     Dosage: 1 INJECTION 2.5 ML, ONCE, BY INJECTION INTO I.V.
     Route: 042
     Dates: start: 20140515, end: 20140515
  3. CLONIDINE [Concomitant]
  4. VESICARE [Concomitant]
  5. OMEPRAZOLE [Concomitant]
  6. PRAMIPEXOLE [Concomitant]
  7. LOSARTAN POTASIUM [Concomitant]
  8. METOPROLOL [Concomitant]
  9. LORAZEPAM [Concomitant]
  10. CETIRIZINE [Concomitant]
  11. CARBAMAZEPIN [Concomitant]
  12. SENNA LAX [Concomitant]
  13. LITHIUM CARB [Concomitant]
  14. LOVASTATIN [Concomitant]
  15. LORAZEPAM [Concomitant]
  16. FISH OIL [Concomitant]
  17. VITAMIN B12 [Concomitant]
  18. VITAMIN B6 [Concomitant]
  19. VITAMIN E [Concomitant]
  20. VITAMIN C [Concomitant]
  21. IBUPROFEN [Concomitant]

REACTIONS (5)
  - Headache [None]
  - Nausea [None]
  - Dizziness [None]
  - Dry mouth [None]
  - Somnolence [None]
